FAERS Safety Report 6876454-8 (Version None)
Quarter: 2010Q3

REPORT INFORMATION
  Report Type: 
  Country: None (occurrence: None)
  Receive Date: 20100727
  Receipt Date: 20100719
  Transmission Date: 20110219
  Serious: Yes (Other)
  Sender: FDA-Public Use
  Company Number: US-JNJCH-2010016922

PATIENT
  Age: 57 Year
  Sex: Female
  Weight: 77.1 kg

DRUGS (1)
  1. ARTHRITIS FORMULA BENGAY [Suspect]
     Indication: MUSCLE SPASMS
     Dosage: TEXT:UNKNOWN
     Route: 061

REACTIONS (4)
  - ACCIDENTAL EXPOSURE [None]
  - CORNEAL ABRASION [None]
  - EYE IRRITATION [None]
  - VISUAL IMPAIRMENT [None]
